FAERS Safety Report 11246911 (Version 2)
Quarter: 2015Q3

REPORT INFORMATION
  Report Type: Spontaneous
  Country: US (occurrence: None)
  Receive Date: 20150706
  Receipt Date: 20150916
  Transmission Date: 20151125
  Serious: Yes (Hospitalization)
  Sender: FDA-Public Use
  Company Number: 1713747-2015-999194

PATIENT
  Sex: Male
  Weight: 68 kg

DRUGS (28)
  1. LIBERTY CYCLER CASSETTE [Concomitant]
     Active Substance: DEVICE
  2. LIBERTY CYCLER [Concomitant]
     Active Substance: DEVICE
  3. PROVENTIL [Concomitant]
     Active Substance: ALBUTEROL
  4. SEVELAMER [Concomitant]
     Active Substance: SEVELAMER
  5. CARDIZEM [Concomitant]
     Active Substance: DILTIAZEM HYDROCHLORIDE
  6. DELFLEX [Suspect]
     Active Substance: CALCIUM CHLORIDE\DEXTROSE MONOHYDRATE\MAGNESIUM CHLORIDE\SODIUM CHLORIDE\SODIUM LACTATE
     Indication: CHRONIC KIDNEY DISEASE
     Dosage: PERITONEAL DIALYSIS
  7. CALCITRIOL. [Concomitant]
     Active Substance: CALCITRIOL
  8. MEGACE [Concomitant]
     Active Substance: MEGESTROL ACETATE
  9. GABAPENTIN. [Concomitant]
     Active Substance: GABAPENTIN
  10. POTASSIUM CHLORIDE. [Concomitant]
     Active Substance: POTASSIUM CHLORIDE
  11. ALLOPURINOL. [Concomitant]
     Active Substance: ALLOPURINOL
  12. ALBUTEROL. [Concomitant]
     Active Substance: ALBUTEROL
  13. ROCALTROL [Concomitant]
     Active Substance: CALCITRIOL
  14. MULTIVITAMIN [Concomitant]
     Active Substance: VITAMINS
  15. PHOSLO [Concomitant]
     Active Substance: CALCIUM ACETATE
  16. DELFLEX [Suspect]
     Active Substance: CALCIUM CHLORIDE\DEXTROSE MONOHYDRATE\MAGNESIUM CHLORIDE\SODIUM CHLORIDE\SODIUM LACTATE
     Indication: PERITONEAL DIALYSIS
     Dosage: PERITONEAL DIALYSIS
  17. AZITHROMYCIN [Concomitant]
     Active Substance: AZITHROMYCIN ANHYDROUS
  18. COMBIVENT [Concomitant]
     Active Substance: ALBUTEROL SULFATE\IPRATROPIUM BROMIDE
  19. LABETALOL [Concomitant]
     Active Substance: LABETALOL\LABETALOL HYDROCHLORIDE
  20. PEPCID [Concomitant]
     Active Substance: FAMOTIDINE
  21. VITAMIN C [Concomitant]
     Active Substance: ASCORBIC ACID
  22. TESSALON [Concomitant]
     Active Substance: BENZONATATE
  23. BISACODYL. [Concomitant]
     Active Substance: BISACODYL
  24. VITAMIN D2 [Concomitant]
     Active Substance: ERGOCALCIFEROL
  25. LISINOPRIL. [Concomitant]
     Active Substance: LISINOPRIL
  26. CHOLECALCIFEROL [Concomitant]
     Active Substance: CHOLECALCIFEROL
  27. HYDROCODONE BITARTRATE AND ACETAMINOPHEN [Concomitant]
     Active Substance: ACETAMINOPHEN\HYDROCODONE BITARTRATE
  28. RENVELA [Concomitant]
     Active Substance: SEVELAMER CARBONATE

REACTIONS (10)
  - Asthenia [None]
  - Azotaemia [None]
  - Metabolic acidosis [None]
  - Malaise [None]
  - Fatigue [None]
  - Hypertension [None]
  - Syncope [None]
  - Blood potassium decreased [None]
  - Hyperkalaemia [None]
  - Atrial fibrillation [None]

NARRATIVE: CASE EVENT DATE: 20150612
